FAERS Safety Report 19604064 (Version 1)
Quarter: 2021Q3

REPORT INFORMATION
  Report Type: Spontaneous
  Country: US (occurrence: US)
  Receive Date: 20210723
  Receipt Date: 20210723
  Transmission Date: 20211014
  Serious: Yes (Other)
  Sender: FDA-Public Use
  Company Number: US-AMERICAN REGENT INC-2021001828

PATIENT
  Age: 5 Hour
  Sex: Female

DRUGS (1)
  1. METHYLERGONOVINE MALEATE INJECTION, USP (0740?20) [Suspect]
     Active Substance: METHYLERGONOVINE MALEATE
     Indication: PRODUCT USED FOR UNKNOWN INDICATION
     Dosage: 0.2 MG, SINGLE
     Route: 030

REACTIONS (12)
  - Bandaemia [Recovered/Resolved]
  - Product use issue [Recovered/Resolved]
  - White blood cell count increased [Recovered/Resolved]
  - Blood glucose increased [Recovered/Resolved]
  - Generalised tonic-clonic seizure [Recovered/Resolved]
  - Metabolic acidosis [Recovered/Resolved]
  - Wrong product administered [Recovered/Resolved]
  - Cyanosis [Recovered/Resolved]
  - Apnoea [Recovered/Resolved]
  - Unresponsive to stimuli [Recovered/Resolved]
  - Respiratory acidosis [Recovered/Resolved]
  - Bradycardia [Recovered/Resolved]
